FAERS Safety Report 7378149-3 (Version None)
Quarter: 2011Q1

REPORT INFORMATION
  Report Type: 
  Country: None (occurrence: None)
  Receive Date: 20110328
  Receipt Date: 20110318
  Transmission Date: 20110831
  Serious: Yes (Other)
  Sender: FDA-Public Use
  Company Number: FR-JNJFOC-20110303853

PATIENT
  Age: 14 Year
  Sex: Female

DRUGS (2)
  1. KETUM [Concomitant]
     Route: 065
  2. TOPIRAMATE [Suspect]
     Indication: MIGRAINE PROPHYLAXIS
     Route: 048

REACTIONS (9)
  - SUICIDE ATTEMPT [None]
  - LACERATION [None]
  - MENTAL DISORDER [None]
  - SOCIAL PHOBIA [None]
  - EDUCATIONAL PROBLEM [None]
  - DEPRESSION [None]
  - DECREASED APPETITE [None]
  - BULIMIA NERVOSA [None]
  - FATIGUE [None]
